FAERS Safety Report 24921587 (Version 1)
Quarter: 2025Q1

REPORT INFORMATION
  Report Type: Spontaneous
  Country: US (occurrence: US)
  Receive Date: 20250204
  Receipt Date: 20250204
  Transmission Date: 20250408
  Serious: No
  Sender: Kenvue
  Company Number: US-KENVUE-20250101980

PATIENT

DRUGS (1)
  1. ROGAINE [Suspect]
     Active Substance: MINOXIDIL
     Indication: Product used for unknown indication
     Dosage: USE AT NIGHT
     Route: 061

REACTIONS (3)
  - Seborrhoea [Unknown]
  - Poor quality product administered [Unknown]
  - Product formulation issue [Unknown]
